FAERS Safety Report 11728352 (Version 1)
Quarter: 2015Q4

REPORT INFORMATION
  Report Type: Spontaneous
  Country: US (occurrence: US)
  Receive Date: 20151112
  Receipt Date: 20151112
  Transmission Date: 20160304
  Serious: No
  Sender: FDA-Public Use
  Company Number: US-PFIZER INC-2015382405

PATIENT
  Age: 46 Year
  Sex: Female

DRUGS (3)
  1. LYRICA [Suspect]
     Active Substance: PREGABALIN
     Dosage: UNK
  2. TOPAMAX [Suspect]
     Active Substance: TOPIRAMATE
     Dosage: UNK
  3. BACLOFEN. [Suspect]
     Active Substance: BACLOFEN
     Dosage: UNK

REACTIONS (1)
  - Drug hypersensitivity [Unknown]
